FAERS Safety Report 10168311 (Version 1)
Quarter: 2014Q2

REPORT INFORMATION
  Report Type: Spontaneous
  Country: AU (occurrence: AU)
  Receive Date: 20140512
  Receipt Date: 20140512
  Transmission Date: 20141212
  Serious: Yes (Hospitalization, Other)
  Sender: FDA-Public Use
  Company Number: PHHY2014AU054391

PATIENT
  Age: 34 Year
  Sex: Female

DRUGS (3)
  1. HYDRALAZINE [Suspect]
     Indication: PRE-ECLAMPSIA
     Dosage: 50 MG, TID
  2. METHYLDOPA [Suspect]
     Indication: PRE-ECLAMPSIA
     Dosage: 500 MG, TID
  3. METHYLDOPA [Suspect]
     Dosage: 250 MG, TID

REACTIONS (11)
  - Drug-induced liver injury [Recovered/Resolved]
  - Hepatic necrosis [Recovered/Resolved]
  - Hepatic enzyme increased [Recovered/Resolved]
  - Jaundice [Recovered/Resolved]
  - Cholelithiasis [Unknown]
  - Hepatic fibrosis [Unknown]
  - Lethargy [Recovered/Resolved]
  - Spider naevus [Recovered/Resolved]
  - Coagulopathy [Recovered/Resolved]
  - Pre-eclampsia [Recovered/Resolved]
  - Maternal exposure during pregnancy [Unknown]
